FAERS Safety Report 21738436 (Version 1)
Quarter: 2022Q4

REPORT INFORMATION
  Report Type: Spontaneous
  Country: PT (occurrence: PT)
  Receive Date: 20221216
  Receipt Date: 20221216
  Transmission Date: 20230112
  Serious: Yes (Hospitalization)
  Sender: FDA-Public Use
  Company Number: PT-STRIDES ARCOLAB LIMITED-2022SP016800

PATIENT
  Age: 45 Year
  Sex: Female

DRUGS (7)
  1. ZOLPIDEM [Suspect]
     Active Substance: ZOLPIDEM TARTRATE
     Indication: Depression
     Dosage: UNK (FOR INSOMNIA)
     Route: 065
  2. ZOLPIDEM [Suspect]
     Active Substance: ZOLPIDEM TARTRATE
     Indication: Insomnia
     Dosage: 10 MILLIGRAM, UNKNOWN
     Route: 065
  3. ZOLPIDEM [Suspect]
     Active Substance: ZOLPIDEM TARTRATE
     Dosage: UNK (INCREASED DOSE ON HER OWN: 50-60 MG/D (DRUG MISUSE AND OVERDOSE))
     Route: 065
  4. ZOLPIDEM [Suspect]
     Active Substance: ZOLPIDEM TARTRATE
     Dosage: 200 MILLIGRAM, UNKNOWN (INCREASED DOSE ON HER OWN (DRUG MISUSE AND OVERDOSE))
     Route: 065
  5. TRAZODONE [Suspect]
     Active Substance: TRAZODONE HYDROCHLORIDE
     Indication: Depression
     Dosage: 300 MILLIGRAM, UNKNOWN
     Route: 065
  6. VENLAFAXINE [Suspect]
     Active Substance: VENLAFAXINE HYDROCHLORIDE
     Indication: Depression
     Dosage: 300 MILLIGRAM, UNKNOWN
     Route: 065
  7. QUETIAPINE [Suspect]
     Active Substance: QUETIAPINE
     Indication: Depression
     Dosage: 100 MILLIGRAM, UNKNOWN
     Route: 065

REACTIONS (12)
  - Intentional product misuse [Unknown]
  - Eye disorder [Unknown]
  - Indifference [Unknown]
  - Generalised tonic-clonic seizure [Unknown]
  - Withdrawal syndrome [Unknown]
  - Cognitive disorder [Unknown]
  - Psychomotor retardation [Unknown]
  - Speech disorder [Unknown]
  - Insomnia [Unknown]
  - Overdose [Unknown]
  - Toxicity to various agents [Unknown]
  - Off label use [Unknown]
